FAERS Safety Report 8222109-7 (Version None)
Quarter: 2012Q1

REPORT INFORMATION
  Report Type: 
  Country: None (occurrence: None)
  Receive Date: 20120314
  Receipt Date: 20120305
  Transmission Date: 20120608
  Serious: Yes (Life-Threatening, Hospitalization, Other)
  Sender: FDA-Public Use
  Company Number: 2011SP043004

PATIENT
  Age: 45 Year
  Sex: Female

DRUGS (5)
  1. CELEXA [Concomitant]
  2. CALIUM [Concomitant]
  3. THERAGAN [Concomitant]
  4. SAPHRIS [Suspect]
     Indication: DELUSION
     Dosage: 5 MG;ONCE;SL
     Route: 060
     Dates: start: 20110825, end: 20110825
  5. SAPHRIS [Suspect]
     Indication: OBSESSIVE-COMPULSIVE DISORDER
     Dosage: 5 MG;ONCE;SL
     Route: 060
     Dates: start: 20110825, end: 20110825

REACTIONS (4)
  - FALL [None]
  - OFF LABEL USE [None]
  - ANAPHYLACTIC REACTION [None]
  - DEHYDRATION [None]
